FAERS Safety Report 9312439 (Version 2)
Quarter: 2013Q3

REPORT INFORMATION
  Report Type: Spontaneous
  Country: GB (occurrence: GB)
  Receive Date: 20130528
  Receipt Date: 20130829
  Transmission Date: 20140515
  Serious: Yes (Hospitalization, Other)
  Sender: FDA-Public Use
  Company Number: GB-JNJFOC-20130412110

PATIENT
  Age: 44 Year
  Sex: Male

DRUGS (20)
  1. STELARA [Suspect]
     Indication: PSORIASIS
     Route: 058
  2. STELARA [Suspect]
     Indication: PSORIASIS
     Route: 058
     Dates: start: 20110815, end: 20130425
  3. SALBUTAMOL [Concomitant]
     Dosage: 2 PUFFS RDS
     Route: 065
  4. DOCUSATE [Concomitant]
     Route: 065
  5. AUGMENTIN [Concomitant]
     Indication: URINARY TRACT INFECTION
     Dosage: INTERMITTENT COURSES OVER PAST YEAR
     Route: 065
  6. GLYCERYL TRINITRATE [Concomitant]
     Indication: PALPITATIONS
     Dosage: INTERMITTENT COURSES OVER PAST YEAR
     Route: 065
     Dates: start: 20120915
  7. DIAZEPAM [Concomitant]
     Route: 065
  8. CO-CODAMOL [Concomitant]
     Dosage: 30MG 1500 MG AS NECESSARY
     Route: 065
  9. LAXIDO [Concomitant]
     Dosage: AS NECESSARY
     Route: 065
  10. MORPHINE [Concomitant]
     Route: 065
  11. ALPHOSYL [Concomitant]
     Dosage: AS NECESSARY
  12. BUSCOPAN [Concomitant]
  13. BUPRENORPHINE [Concomitant]
     Dosage: ONE PATCH PER WELL
     Route: 062
  14. OMEPRAZOLE [Concomitant]
     Dosage: 1-2 DAILY
     Route: 065
  15. BECLOMETHASONE [Concomitant]
     Route: 045
  16. CIPROFLOXACIN [Concomitant]
     Route: 065
  17. MORPHINE SULFATE [Concomitant]
     Dosage: 10MG/5ML AS NECESSARY
     Route: 065
  18. IPRATROPIUM BROMIDE [Concomitant]
     Dosage: 1 PUFF
  19. SYMBICORT [Concomitant]
     Dosage: 400/12
     Route: 065
  20. EMOLLIENTS [Concomitant]
     Dosage: AS NECESSARY
     Route: 065

REACTIONS (6)
  - Pneumonia [Recovering/Resolving]
  - Epistaxis [Recovered/Resolved]
  - Headache [Unknown]
  - Bladder spasm [Unknown]
  - Abdominal pain [Unknown]
  - Influenza like illness [Unknown]
